FAERS Safety Report 25304972 (Version 1)
Quarter: 2025Q2

REPORT INFORMATION
  Report Type: Other
  Country: US (occurrence: US)
  Receive Date: 20250513
  Receipt Date: 20250513
  Transmission Date: 20250717
  Serious: Yes (Hospitalization, Other)
  Sender: ANI
  Company Number: US-ANIPHARMA-022764

PATIENT
  Age: 71 Year
  Sex: Male

DRUGS (3)
  1. TEMOZOLOMIDE [Suspect]
     Active Substance: TEMOZOLOMIDE
     Indication: Glioblastoma
  2. VALPROIC ACID [Concomitant]
     Active Substance: VALPROIC ACID
     Indication: Product used for unknown indication
  3. LACOSAMIDE [Concomitant]
     Active Substance: LACOSAMIDE
     Indication: Product used for unknown indication

REACTIONS (1)
  - Vanishing bile duct syndrome [Recovering/Resolving]
